FAERS Safety Report 24215866 (Version 1)
Quarter: 2024Q3

REPORT INFORMATION
  Report Type: Spontaneous
  Country: GB (occurrence: GB)
  Receive Date: 20240816
  Receipt Date: 20240816
  Transmission Date: 20241017
  Serious: Yes (Other)
  Sender: ACCORD
  Company Number: None

PATIENT
  Age: 56 Year
  Sex: Male
  Weight: 125 kg

DRUGS (13)
  1. MONTELUKAST [Suspect]
     Active Substance: MONTELUKAST SODIUM
     Indication: Ill-defined disorder
     Dates: start: 20240724
  2. ACETAMINOPHEN\CODEINE PHOSPHATE [Concomitant]
     Active Substance: ACETAMINOPHEN\CODEINE PHOSPHATE
     Indication: Ill-defined disorder
     Dosage: 1 TO 2 TABLETS TO BE TAKEN EVERY 4 TO 6 HOURS WHEN REQUIRED FOR PAIN RELIEF.
     Dates: start: 20240710, end: 20240722
  3. BECLOMETHASONE DIPROPIONATE [Concomitant]
     Active Substance: BECLOMETHASONE DIPROPIONATE
     Indication: Ill-defined disorder
     Dosage: TWO SPRAYS TO BOTH NOSTRILS TWICE A DAY, WHEN S...
     Dates: start: 20231118
  4. BISOPROLOL [Concomitant]
     Active Substance: BISOPROLOL\BISOPROLOL FUMARATE
     Indication: Ill-defined disorder
     Dosage: TAKE ONE DAILY IN THE EVENING
     Dates: start: 20231118
  5. EASYHALER [Concomitant]
     Indication: Ill-defined disorder
     Dosage: INHALE ONE OR TWO PUFFS WHEN REQUIRED FOR BREAT
     Dates: start: 20231118
  6. BUDESONIDE\FORMOTEROL FUMARATE [Concomitant]
     Active Substance: BUDESONIDE\FORMOTEROL FUMARATE
     Indication: Ill-defined disorder
     Dosage: TWO PUFFS TWICE A DAY. PLEASE RETURN YOUR EMPTY...
     Dates: start: 20231118
  7. LANSOPRAZOLE [Concomitant]
     Active Substance: LANSOPRAZOLE
     Indication: Ill-defined disorder
     Dosage: TAKE ONE ONCE DAILY
     Dates: start: 20231118
  8. LERCANIDIPINE HYDROCHLORIDE [Concomitant]
     Active Substance: LERCANIDIPINE HYDROCHLORIDE
     Indication: Ill-defined disorder
     Dosage: TAKE ONE DAILY
     Dates: start: 20231118
  9. LOSARTAN [Concomitant]
     Active Substance: LOSARTAN\LOSARTAN POTASSIUM
     Indication: Ill-defined disorder
     Dosage: TAKE ONE DAILY
     Dates: start: 20231118
  10. MIRTAZAPINE [Concomitant]
     Active Substance: MIRTAZAPINE
     Indication: Ill-defined disorder
     Dosage: TAKE ONE AT NIGHT
     Dates: start: 20231118
  11. SIMVASTATIN [Concomitant]
     Active Substance: SIMVASTATIN
     Indication: Ill-defined disorder
     Dosage: TAKE ONE EACH NIGHT
     Dates: start: 20231118
  12. TADALAFIL [Concomitant]
     Active Substance: TADALAFIL
     Indication: Ill-defined disorder
     Dosage: USE AS  AS ADVISED BY SPECIALIST
     Dates: start: 20240206
  13. SUSTANON [Concomitant]
     Indication: Ill-defined disorder
     Dosage: USE AS DIRECTED EVERY 3 WEEKS AS ADVISED BY URO
     Dates: start: 20240408

REACTIONS (1)
  - Mood altered [Recovered/Resolved]
